FAERS Safety Report 5907316-8 (Version None)
Quarter: 2008Q4

REPORT INFORMATION
  Report Type: 
  Country: None (occurrence: None)
  Receive Date: 20081003
  Receipt Date: 20080922
  Transmission Date: 20090506
  Serious: Yes (Hospitalization)
  Sender: FDA-Public Use
  Company Number: US-KINGPHARMUSA00001-K200801121

PATIENT

DRUGS (22)
  1. AVINZA [Suspect]
     Dosage: 120 MG, TID
     Route: 048
  2. AVINZA [Suspect]
     Dosage: 230 MG, TID
     Route: 048
  3. MORPHINE SULFATE [Suspect]
     Dosage: 60 MG, Q4H PRN
     Route: 048
  4. MORPHINE SULFATE [Suspect]
     Dosage: 120 MG, Q3H PRN
     Route: 048
  5. MORPHINE SULFATE [Suspect]
     Dosage: 200 MG, Q3H PRN
     Route: 048
  6. IBUPROFEN [Concomitant]
     Indication: PAIN
     Dosage: 800 MG, TID
     Route: 048
  7. IBUPROFEN [Concomitant]
     Dosage: 120 MG, TID
     Route: 048
  8. IBUPROFEN [Concomitant]
     Dosage: 400 MG, TID
     Route: 048
  9. OXYCODONE HCL EXTENDED-RELEASE [Suspect]
     Dosage: 140 MG, BID
     Route: 048
  10. OXYCODONE HCL EXTENDED-RELEASE [Suspect]
     Dosage: 120 MG, TID
  11. OXYCODONE HCL EXTENDED-RELEASE [Suspect]
     Dosage: 60 MG, BID
  12. DEXAMETHASONE [Concomitant]
     Dosage: 10 MG, UNK
     Route: 042
  13. DEXAMETHASONE [Concomitant]
     Dosage: 4 MG, QID
     Route: 065
  14. MORPHINE [Suspect]
     Dosage: 6 MG, HR
     Route: 042
  15. MORPHINE [Suspect]
     Dosage: 10 MG, HR
     Route: 042
  16. OXYCODONE HCL [Suspect]
     Dosage: 15 MG, Q4H
     Route: 048
  17. OXYCODONE HCL [Suspect]
     Dosage: 50 MG, TID
     Route: 048
  18. FENTANYL TRANSDERMAL SYSTEM [Suspect]
     Dosage: 200 MCG, UNK
  19. HYDROMORPHONE HCL [Suspect]
     Dosage: 9 MG, HR
     Route: 042
  20. HYDROMORPHONE HCL [Suspect]
     Dosage: 27 MG, HR
     Route: 042
  21. LORAZEPAM [Concomitant]
     Dosage: .25 MG, TID
     Route: 048
  22. LIDOCAINE                          /00033402/ [Concomitant]

REACTIONS (1)
  - HYPERAESTHESIA [None]
